FAERS Safety Report 7467091-5 (Version None)
Quarter: 2011Q2

REPORT INFORMATION
  Report Type: 
  Country: None (occurrence: None)
  Receive Date: 20110509
  Receipt Date: 20101018
  Transmission Date: 20111010
  Serious: No
  Sender: FDA-Public Use
  Company Number: US-ALEXION-A201001315

PATIENT
  Sex: Female

DRUGS (15)
  1. ARANESP [Concomitant]
     Dosage: 0.2 MG/0.4 ML INJECTION
  2. COUMADIN [Concomitant]
     Dosage: 5 MG, QD
     Route: 048
  3. METOPROLOL SUCCINATE [Concomitant]
     Dosage: 50 MG, BID
     Route: 048
  4. TYLENOL (CAPLET) [Concomitant]
     Dosage: 325 MG, PRN
     Route: 048
  5. MENINGOCOCCAL VACCINE [Concomitant]
     Dosage: UNK
     Dates: start: 20100101
  6. TRENTAL [Concomitant]
     Dosage: 400 MG, TID
     Route: 048
  7. SOLIRIS [Suspect]
     Indication: PAROXYSMAL NOCTURNAL HAEMOGLOBINURIA
     Dosage: 900 MG, Q2W
     Route: 042
  8. ASPIRIN [Concomitant]
     Dosage: 81 MG, QD
     Route: 048
  9. BETAMETHASONE VALERATE [Concomitant]
     Dosage: 0.1 %, BID, PRN
     Route: 061
  10. LASIX [Concomitant]
     Dosage: 20 MG, QD
     Route: 048
  11. TYLENOL W/ CODEINE [Concomitant]
     Dosage: 300/60 MG, Q4H, PRN
     Route: 048
  12. NITROGLYCERIN [Concomitant]
     Dosage: 0.4 MG, PRN
     Route: 048
  13. PLAVIX [Concomitant]
     Dosage: 75 MG, QD
     Route: 048
  14. QUINAPRIL HYDROCHLORIDE [Concomitant]
     Dosage: 10 MG, QD
     Route: 048
  15. INFLUENZA [Concomitant]
     Dosage: UNK
     Dates: start: 20100101

REACTIONS (5)
  - DECREASED APPETITE [None]
  - INSOMNIA [None]
  - WEIGHT DECREASED [None]
  - FATIGUE [None]
  - HEADACHE [None]
